FAERS Safety Report 11814390 (Version 1)
Quarter: 2015Q4

REPORT INFORMATION
  Report Type: Report from Study
  Country: AU (occurrence: AU)
  Receive Date: 20151209
  Receipt Date: 20151209
  Transmission Date: 20160305
  Serious: Yes (Death, Other)
  Sender: FDA-Public Use
  Company Number: AU-CELGENE-AUS-2015118078

PATIENT

DRUGS (1)
  1. REVLIMID [Suspect]
     Active Substance: LENALIDOMIDE
     Indication: PLASMA CELL MYELOMA
     Route: 048

REACTIONS (36)
  - Rectal neoplasm [Unknown]
  - Respiratory disorder [Unknown]
  - Skin disorder [Unknown]
  - Anaemia [Unknown]
  - Oedema peripheral [Unknown]
  - Pain in extremity [Unknown]
  - Haemoglobin decreased [Unknown]
  - Musculoskeletal disorder [Unknown]
  - Back pain [Unknown]
  - Immune system disorder [Unknown]
  - Photosensitivity reaction [Unknown]
  - Diarrhoea [Unknown]
  - Peripheral sensory neuropathy [Unknown]
  - Febrile neutropenia [Unknown]
  - Exfoliative rash [Unknown]
  - Platelet count decreased [Unknown]
  - Nervous system disorder [Unknown]
  - Angiopathy [Unknown]
  - Blood glucose increased [Unknown]
  - Plasma cell myeloma [Unknown]
  - Cytopenia [Unknown]
  - Syncope [Unknown]
  - Musculoskeletal chest pain [Unknown]
  - Pain [Unknown]
  - Plasma cell myeloma [Fatal]
  - Infection [Unknown]
  - Fatigue [Unknown]
  - Tooth disorder [Unknown]
  - Dyspnoea [Unknown]
  - Multi-organ failure [Fatal]
  - Cardiac failure [Fatal]
  - Neutrophil count decreased [Unknown]
  - Lymphatic disorder [Unknown]
  - Fracture [Unknown]
  - Pneumonia [Unknown]
  - Chest pain [Unknown]
